FAERS Safety Report 7224831-8 (Version None)
Quarter: 2011Q1

REPORT INFORMATION
  Report Type: 
  Country: None (occurrence: None)
  Receive Date: 20110113
  Receipt Date: 20110110
  Transmission Date: 20110831
  Serious: Yes (Other)
  Sender: FDA-Public Use
  Company Number: BR-ELI_LILLY_AND_COMPANY-BR201008001273

PATIENT
  Sex: Female

DRUGS (2)
  1. BYETTA [Suspect]
     Indication: DIABETES MELLITUS
     Dosage: 10 UG, DAILY (1/D)
     Route: 065
     Dates: start: 20100601
  2. BENICAR HCT [Concomitant]
     Indication: HYPERTENSION
     Dosage: UNK, DAILY (1/D)

REACTIONS (2)
  - ARTERIAL OCCLUSIVE DISEASE [None]
  - DIZZINESS [None]
